FAERS Safety Report 15675780 (Version 1)
Quarter: 2018Q4

REPORT INFORMATION
  Report Type: Spontaneous
  Country: US (occurrence: US)
  Receive Date: 20181130
  Receipt Date: 20181130
  Transmission Date: 20190205
  Serious: No
  Sender: FDA-Public Use
  Company Number: US-TRIS PHARMA, INC.-2018TRISPO01075

PATIENT

DRUGS (1)
  1. QUILLIVANT XR [Suspect]
     Active Substance: METHYLPHENIDATE HYDROCHLORIDE
     Indication: ATTENTION DEFICIT/HYPERACTIVITY DISORDER
     Dosage: 6 ML PER DAY
     Route: 048
     Dates: start: 201208

REACTIONS (3)
  - Disturbance in attention [Not Recovered/Not Resolved]
  - Product dose omission [None]
  - Abnormal behaviour [Not Recovered/Not Resolved]
